FAERS Safety Report 11888640 (Version 1)
Quarter: 2016Q1

REPORT INFORMATION
  Report Type: Spontaneous
  Country: US (occurrence: None)
  Receive Date: 20160104
  Receipt Date: 20160104
  Transmission Date: 20160526
  Serious: Yes (Life-Threatening, Hospitalization, Disabling, Other)
  Sender: FDA-Public Use
  Company Number: None

PATIENT
  Age: 52 Year
  Sex: Female
  Weight: 79.38 kg

DRUGS (12)
  1. SPINAL EPIDURAL [Concomitant]
  2. NADOLOL. [Concomitant]
     Active Substance: NADOLOL
  3. VITAMIN B12 [Concomitant]
     Active Substance: CYANOCOBALAMIN
  4. ASPIRIN. [Concomitant]
     Active Substance: ASPIRIN
  5. IBUPROFEN. [Concomitant]
     Active Substance: IBUPROFEN
  6. MULTI VITAMIN [Concomitant]
     Active Substance: VITAMINS
  7. LANTUS SOLOSTAR [Concomitant]
     Active Substance: INSULIN GLARGINE
  8. GLIPIZIDE. [Concomitant]
     Active Substance: GLIPIZIDE
  9. VICTOZA [Suspect]
     Active Substance: LIRAGLUTIDE
     Indication: TYPE 2 DIABETES MELLITUS
     Route: 058
     Dates: start: 20151022, end: 20151103
  10. NOVOLOG [Concomitant]
     Active Substance: INSULIN ASPART
  11. PLAVIX [Concomitant]
     Active Substance: CLOPIDOGREL BISULFATE
  12. NEW MED -- A STANTIN (?) HAVEN^T MEMORIZED THE NAME YET [Concomitant]

REACTIONS (5)
  - Weight increased [None]
  - Furuncle [None]
  - Pain [None]
  - Rash [None]
  - Ischaemic stroke [None]

NARRATIVE: CASE EVENT DATE: 20151104
